FAERS Safety Report 26094307 (Version 1)
Quarter: 2025Q4

REPORT INFORMATION
  Report Type: Spontaneous
  Country: GB (occurrence: GB)
  Receive Date: 20251126
  Receipt Date: 20251126
  Transmission Date: 20260117
  Serious: Yes (Hospitalization, Other)
  Sender: PFIZER
  Company Number: GB-009507513-2351381

PATIENT
  Age: 78 Year
  Sex: Female

DRUGS (3)
  1. PACLITAXEL [Suspect]
     Active Substance: PACLITAXEL
     Indication: Endometrial cancer stage IV
     Dosage: UNK (3 CYCLES)
  2. CARBOPLATIN [Suspect]
     Active Substance: CARBOPLATIN
     Indication: Endometrial cancer stage IV
     Dosage: UNK (3 CYCLES)
  3. KEYTRUDA [Suspect]
     Active Substance: PEMBROLIZUMAB
     Indication: Endometrial cancer stage IV
     Dosage: UNK (3 CYCLES)

REACTIONS (2)
  - Myocarditis-myositis-myasthenia gravis overlap syndrome [Unknown]
  - Off label use [Unknown]
